FAERS Safety Report 24071523 (Version 1)
Quarter: 2024Q3

REPORT INFORMATION
  Report Type: Report from Study
  Country: DE (occurrence: DE)
  Receive Date: 20240710
  Receipt Date: 20240710
  Transmission Date: 20241017
  Serious: No
  Sender: ROCHE
  Company Number: DE-ROCHE-3514961

PATIENT
  Age: 47 Year
  Sex: Male

DRUGS (1)
  1. RISDIPLAM [Suspect]
     Active Substance: RISDIPLAM
     Indication: Spinal muscular atrophy
     Route: 048

REACTIONS (5)
  - Diarrhoea [Unknown]
  - COVID-19 [Unknown]
  - Abdominal pain [Unknown]
  - Rash [Unknown]
  - Photosensitivity reaction [Unknown]
